FAERS Safety Report 17510332 (Version 1)
Quarter: 2020Q1

REPORT INFORMATION
  Report Type: Report from Study
  Country: US (occurrence: US)
  Receive Date: 20200306
  Receipt Date: 20200306
  Transmission Date: 20200409
  Serious: Yes (Hospitalization)
  Sender: FDA-Public Use
  Company Number: US-ADAMAS PHARMA, LLC-2019ADA02092

PATIENT
  Age: 70 Year
  Sex: Female
  Weight: 64.4 kg

DRUGS (33)
  1. DEXILANT [Concomitant]
     Active Substance: DEXLANSOPRAZOLE
  2. GOCOVRI [Suspect]
     Active Substance: AMANTADINE
     Dosage: 137 MG, 1X/DAY AT BEDTIME
     Route: 048
     Dates: start: 201911
  3. HYQVIA [Concomitant]
     Active Substance: HUMAN IMMUNOGLOBULIN G\HYALURONIDASE RECOMBINANT HUMAN
     Dosage: UNK
     Dates: end: 20190923
  4. SUDAFED PE CONGESTION [Concomitant]
     Active Substance: PHENYLEPHRINE HYDROCHLORIDE
  5. TRINTELLIX [Concomitant]
     Active Substance: VORTIOXETINE HYDROBROMIDE
  6. ROLAIDS EXTRA STRENGTH [Concomitant]
     Active Substance: CALCIUM CARBONATE\MAGNESIUM HYDROXIDE
  7. ASPIRIN. [Concomitant]
     Active Substance: ASPIRIN
  8. CALCIUM FOR WOMEN [Concomitant]
  9. FUROSEMIDE. [Concomitant]
     Active Substance: FUROSEMIDE
  10. CARBIDOPA/LEVODOPA [Concomitant]
     Active Substance: CARBIDOPA\LEVODOPA
  11. CARVEDILOL. [Concomitant]
     Active Substance: CARVEDILOL
  12. CLOBETASOL PROPIONATE. [Concomitant]
     Active Substance: CLOBETASOL PROPIONATE
  13. COLACE [Concomitant]
     Active Substance: DOCUSATE SODIUM
  14. ONDANSETRON ODT [Concomitant]
     Active Substance: ONDANSETRON
     Dosage: UNK
  15. SPIRONOLACTONE. [Concomitant]
     Active Substance: SPIRONOLACTONE
  16. TYLENOL [Concomitant]
     Active Substance: ACETAMINOPHEN
  17. ALIGN [Concomitant]
     Active Substance: BIFIDOBACTERIUM LONGUM SUBSP. INFANTIS
  18. ALBUTEROL. [Concomitant]
     Active Substance: ALBUTEROL
     Dosage: UNK, AS NEEDED
  19. LEFLUNOMIDE. [Concomitant]
     Active Substance: LEFLUNOMIDE
     Indication: RHEUMATOID ARTHRITIS
  20. UNSPECIFIED OINTMENTS [Concomitant]
  21. BENADRYL [Concomitant]
     Active Substance: DIPHENHYDRAMINE HYDROCHLORIDE
  22. SEROQUEL [Concomitant]
     Active Substance: QUETIAPINE FUMARATE
  23. VITAMIN D [Concomitant]
     Active Substance: VITAMIN D NOS
  24. GOCOVRI [Suspect]
     Active Substance: AMANTADINE
     Indication: DYSKINESIA
     Dosage: 68.5 MG, 1X/DAY AT BETIME
     Route: 048
     Dates: start: 20190822, end: 20190828
  25. GOCOVRI [Suspect]
     Active Substance: AMANTADINE
     Dosage: 137 MG, 1X/DAY AT BEDTIME
     Route: 048
  26. KEPPRA [Suspect]
     Active Substance: LEVETIRACETAM
     Indication: SEIZURE
     Dosage: UNK
     Dates: start: 201909, end: 2019
  27. GUAIFENESIN DAC [Concomitant]
     Active Substance: CODEINE PHOSPHATE\GUAIFENESIN\PSEUDOEPHEDRINE HYDROCHLORIDE
  28. FIBERCON [Concomitant]
     Active Substance: CALCIUM POLYCARBOPHIL
  29. GOCOVRI [Suspect]
     Active Substance: AMANTADINE
     Indication: DYSKINESIA
     Dosage: 137 MG, 1X/DAY AT BEDTIME
     Route: 048
     Dates: start: 20190829, end: 20190922
  30. ATORVASTATIN [Concomitant]
     Active Substance: ATORVASTATIN
  31. BUPROPION XL [Concomitant]
     Active Substance: BUPROPION
  32. LEVOTHYROXINE. [Concomitant]
     Active Substance: LEVOTHYROXINE
     Dosage: UNK
  33. UNSPECIFIED CREAMS [Concomitant]
     Active Substance: UNSPECIFIED INGREDIENT

REACTIONS (18)
  - Lethargy [Unknown]
  - Cardiac pacemaker insertion [Recovered/Resolved]
  - Bradycardia [Recovered/Resolved]
  - Oedema [Unknown]
  - Gastrointestinal tube insertion [Recovered/Resolved]
  - Visual impairment [Not Recovered/Not Resolved]
  - Decreased appetite [Unknown]
  - Road traffic accident [Recovered/Resolved]
  - Gastrooesophageal reflux disease [Not Recovered/Not Resolved]
  - Nausea [Recovering/Resolving]
  - Product dose omission [Recovered/Resolved]
  - Pneumonia [Recovered/Resolved]
  - Cardiac arrest [Recovered/Resolved]
  - Post stroke seizure [Recovered/Resolved]
  - Cerebrovascular accident [Recovering/Resolving]
  - Cataract [Not Recovered/Not Resolved]
  - Vomiting [Recovering/Resolving]
  - Dysphagia [Recovering/Resolving]

NARRATIVE: CASE EVENT DATE: 2019
